FAERS Safety Report 18576680 (Version 1)
Quarter: 2020Q4

REPORT INFORMATION
  Report Type: Spontaneous
  Country: US (occurrence: US)
  Receive Date: 20201203
  Receipt Date: 20201203
  Transmission Date: 20210114
  Serious: No
  Sender: FDA-Public Use
  Company Number: NVSC2020US319126

PATIENT
  Sex: Female

DRUGS (2)
  1. TAFINLAR [Suspect]
     Active Substance: DABRAFENIB MESYLATE
     Indication: MALIGNANT LYMPHOID NEOPLASM
     Dosage: 150 MG, BID
     Route: 048
     Dates: start: 20201028
  2. MEKINIST [Suspect]
     Active Substance: TRAMETINIB DIMETHYL SULFOXIDE
     Indication: MALIGNANT LYMPHOID NEOPLASM
     Dosage: 2 MG, QD
     Route: 048
     Dates: start: 20201028

REACTIONS (2)
  - Vision blurred [Unknown]
  - Product use in unapproved indication [Unknown]
